FAERS Safety Report 16717260 (Version 2)
Quarter: 2019Q3

REPORT INFORMATION
  Report Type: Spontaneous
  Country: FR (occurrence: FR)
  Receive Date: 20190819
  Receipt Date: 20190903
  Transmission Date: 20191005
  Serious: Yes (Hospitalization)
  Sender: FDA-Public Use
  Company Number: FR-MYLANLABS-2019M1076989

PATIENT
  Age: 68 Year
  Sex: Female
  Weight: 82 kg

DRUGS (15)
  1. AZACITIDINE. [Suspect]
     Active Substance: AZACITIDINE
     Indication: ACUTE MYELOID LEUKAEMIA
     Dosage: 994 MILLIGRAM, CYCLE
     Route: 058
     Dates: start: 20180629, end: 20181020
  2. ENASIDENIB [Suspect]
     Active Substance: ENASIDENIB
     Indication: ACUTE MYELOID LEUKAEMIA
     Dosage: 100 MILLIGRAM, QD
     Route: 048
     Dates: start: 201810, end: 201901
  3. CYTARABINE. [Suspect]
     Active Substance: CYTARABINE
     Indication: ACUTE MYELOID LEUKAEMIA
     Dosage: 190 MILLIGRAM, QD
     Route: 042
     Dates: start: 20180526, end: 20180531
  4. METRONIDAZOLE. [Suspect]
     Active Substance: METRONIDAZOLE
     Indication: FEBRILE NEUTROPENIA
     Dosage: 1500 MILLIGRAM, QD
     Route: 042
     Dates: start: 20190210
  5. THIOTEPA. [Suspect]
     Active Substance: THIOTEPA
     Indication: BONE MARROW CONDITIONING REGIMEN
     Dosage: 145 MILLIGRAM, TOTAL
     Route: 042
     Dates: start: 20190201, end: 20190201
  6. CHOLURSO [Suspect]
     Active Substance: URSODIOL
     Indication: PROPHYLAXIS
     Dosage: 1 DOSAGE FORM, Q8H
     Route: 048
     Dates: start: 20190208, end: 20190219
  7. VANCOMYCINE                        /00314401/ [Suspect]
     Active Substance: VANCOMYCIN
     Indication: FEBRILE NEUTROPENIA
     Dosage: 3 GRAM, QD
     Route: 042
     Dates: start: 20190211, end: 20190217
  8. SANDIMMUN [Suspect]
     Active Substance: CYCLOSPORINE
     Indication: PROPHYLAXIS AGAINST TRANSPLANT REJECTION
     Dosage: 110 MILLIGRAM, QD
     Route: 042
     Dates: start: 20190212
  9. CEFTAZIDIME. [Suspect]
     Active Substance: CEFTAZIDIME
     Indication: FEBRILE NEUTROPENIA
     Dosage: 2 GRAM, Q8H
     Route: 042
     Dates: start: 20190211, end: 20190217
  10. IDARUBICIN [Suspect]
     Active Substance: IDARUBICIN
     Indication: ACUTE MYELOID LEUKAEMIA
     Dosage: 15.1 MILLIGRAM, QD
     Route: 042
     Dates: start: 20180526, end: 20180530
  11. FLUDARABINE PHOSPHATE. [Suspect]
     Active Substance: FLUDARABINE PHOSPHATE
     Indication: BONE MARROW CONDITIONING REGIMEN
     Dosage: 72 MILLIGRAM, QD
     Route: 062
     Dates: start: 20190202, end: 20190205
  12. ENDOXAN                            /00021101/ [Suspect]
     Active Substance: CYCLOPHOSPHAMIDE
     Indication: PROPHYLAXIS AGAINST TRANSPLANT REJECTION
     Dosage: 50 MILLIGRAM/KILOGRAM, QD
     Route: 042
     Dates: start: 20190210, end: 20190211
  13. BUSULFAN. [Suspect]
     Active Substance: BUSULFAN
     Indication: BONE MARROW CONDITIONING REGIMEN
     Dosage: 259 MILLIGRAM, QD
     Route: 042
     Dates: start: 20190203, end: 20190204
  14. CELLCEPT [Suspect]
     Active Substance: MYCOPHENOLATE MOFETIL\MYCOPHENOLATE MOFETIL HYDROCHLORIDE
     Indication: PROPHYLAXIS AGAINST TRANSPLANT REJECTION
     Dosage: 100 MILLIGRAM, BID
     Route: 042
     Dates: start: 20190212
  15. ONDANSETRON [Suspect]
     Active Substance: ONDANSETRON
     Indication: NAUSEA
     Dosage: 16 MILLIGRAM, QD
     Route: 042
     Dates: start: 20190210, end: 20190213

REACTIONS (3)
  - Cardiac failure [Not Recovered/Not Resolved]
  - Cardiomyopathy [Not Recovered/Not Resolved]
  - Ejection fraction decreased [Not Recovered/Not Resolved]

NARRATIVE: CASE EVENT DATE: 20190213
